FAERS Safety Report 22323564 (Version 4)
Quarter: 2023Q2

REPORT INFORMATION
  Report Type: Spontaneous
  Country: DE (occurrence: DE)
  Receive Date: 20230516
  Receipt Date: 20230623
  Transmission Date: 20230722
  Serious: Yes (Death, Hospitalization, Other)
  Sender: FDA-Public Use
  Company Number: DE-BoehringerIngelheim-2023-BI-236121

PATIENT
  Age: 60 Year
  Sex: Male
  Weight: 86 kg

DRUGS (8)
  1. DOCETAXEL [Suspect]
     Active Substance: DOCETAXEL
     Indication: Non-small cell lung cancer
     Dosage: 150 MG, QD
     Route: 065
     Dates: start: 20230403, end: 20230423
  2. NINTEDANIB [Suspect]
     Active Substance: NINTEDANIB
     Indication: Non-small cell lung cancer
     Dosage: 400 MG, QD
     Route: 048
     Dates: start: 20230404, end: 20230411
  3. CLOPIDOGREL [Concomitant]
     Active Substance: CLOPIDOGREL BISULFATE
     Indication: Product used for unknown indication
     Dosage: 75 MG, QD
     Route: 048
  4. METAMIZOLE [Concomitant]
     Active Substance: METAMIZOLE
     Indication: Product used for unknown indication
     Dosage: 500 MG, Q6H (4 X 500 MG/DAY)
     Route: 048
     Dates: start: 202303
  5. CANDESARPLUS AL [Concomitant]
     Indication: Product used for unknown indication
     Dosage: 16 MG, QD (8 MG/12.5 MG/-16 MG/12.5 MG)
     Route: 048
  6. AMLODIPINE MALEATE [Concomitant]
     Active Substance: AMLODIPINE MALEATE
     Indication: Product used for unknown indication
     Dosage: 5 MG, QD
     Route: 048
     Dates: start: 202303, end: 202305
  7. FOLIC ACID [Concomitant]
     Active Substance: FOLIC ACID
     Indication: Product used for unknown indication
     Dosage: 5 MG, QD
     Route: 048
     Dates: start: 202208
  8. DEXAMETHASONE [Concomitant]
     Active Substance: DEXAMETHASONE
     Indication: Product used for unknown indication
     Dosage: 4 MG, Q12H
     Route: 048
     Dates: start: 202303

REACTIONS (6)
  - Malignant neoplasm progression [Fatal]
  - Fatigue [Fatal]
  - General physical health deterioration [Unknown]
  - Hypophagia [Unknown]
  - Epistaxis [Recovered/Resolved]
  - Oral candidiasis [Not Recovered/Not Resolved]

NARRATIVE: CASE EVENT DATE: 20230411
